FAERS Safety Report 6715073-0 (Version None)
Quarter: 2010Q2

REPORT INFORMATION
  Report Type: 
  Country: None (occurrence: None)
  Receive Date: 20100506
  Receipt Date: 20100506
  Transmission Date: 20101027
  Serious: Yes (Hospitalization)
  Sender: FDA-Public Use
  Company Number: None

PATIENT
  Sex: Female
  Weight: 52.1637 kg

DRUGS (1)
  1. WARFARIN SODIUM [Suspect]
     Indication: ATRIAL FIBRILLATION
     Dosage: 2.5MG OR 5MG DAILY BY MOUTH
     Route: 048
     Dates: start: 20040101, end: 20070101

REACTIONS (3)
  - HAEMOPTYSIS [None]
  - PRODUCT SUBSTITUTION ISSUE [None]
  - PROTHROMBIN LEVEL ABNORMAL [None]
